FAERS Safety Report 7094642-5 (Version None)
Quarter: 2010Q4

REPORT INFORMATION
  Report Type: 
  Country: None (occurrence: None)
  Receive Date: 20101110
  Receipt Date: 20101102
  Transmission Date: 20110411
  Serious: Yes (Other)
  Sender: FDA-Public Use
  Company Number: US-PFIZER INC-2010140894

PATIENT
  Sex: Female

DRUGS (4)
  1. NEURONTIN [Suspect]
     Indication: INTERVERTEBRAL DISC PROTRUSION
     Dates: start: 20000101, end: 20100101
  2. NEURONTIN [Suspect]
     Indication: NERVOUS SYSTEM DISORDER
  3. LYRICA [Suspect]
     Indication: INTERVERTEBRAL DISC PROTRUSION
     Dosage: 75MG DAILY
     Dates: start: 20100101
  4. LYRICA [Suspect]
     Indication: NERVOUS SYSTEM DISORDER

REACTIONS (3)
  - APHTHOUS STOMATITIS [None]
  - DRUG INEFFECTIVE [None]
  - SWOLLEN TONGUE [None]
